FAERS Safety Report 23388392 (Version 1)
Quarter: 2024Q1

REPORT INFORMATION
  Report Type: Spontaneous
  Country: US (occurrence: US)
  Receive Date: 20240110
  Receipt Date: 20240110
  Transmission Date: 20240409
  Serious: No
  Sender: FDA-Public Use
  Company Number: US-SA-SAC20240105001066

PATIENT
  Age: 46 Year
  Sex: Female

DRUGS (1)
  1. DUPIXENT [Suspect]
     Active Substance: DUPILUMAB
     Indication: Dermatitis atopic
     Dosage: 300 MG, QOW
     Route: 058

REACTIONS (12)
  - Dry skin [Unknown]
  - Sleep disorder [Unknown]
  - Nausea [Unknown]
  - Gastrointestinal disorder [Unknown]
  - Skin haemorrhage [Unknown]
  - Skin weeping [Unknown]
  - Skin fissures [Unknown]
  - Gastroenteritis viral [Unknown]
  - Liver disorder [Unknown]
  - Skin exfoliation [Unknown]
  - Pruritus [Unknown]
  - Rash [Unknown]

NARRATIVE: CASE EVENT DATE: 20231201
